FAERS Safety Report 5755993-7 (Version None)
Quarter: 2008Q2

REPORT INFORMATION
  Report Type: 
  Country: None (occurrence: None)
  Receive Date: 20080602
  Receipt Date: 20080325
  Transmission Date: 20081010
  Serious: No
  Sender: FDA-Public Use
  Company Number: US-ABBOTT-08P-163-0444636-00

PATIENT
  Sex: Female
  Weight: 79.45 kg

DRUGS (1)
  1. ZEMPLAR [Suspect]
     Indication: THYROID MASS
     Route: 048
     Dates: start: 20080108, end: 20080109

REACTIONS (2)
  - DIARRHOEA [None]
  - FLATULENCE [None]
